FAERS Safety Report 7936244-1 (Version None)
Quarter: 2011Q4

REPORT INFORMATION
  Report Type: 
  Country: None (occurrence: None)
  Receive Date: 20111121
  Receipt Date: 20111115
  Transmission Date: 20120403
  Serious: Yes (Other)
  Sender: FDA-Public Use
  Company Number: AUR-APU-2011-05825

PATIENT
  Age: 12 Year
  Sex: Female

DRUGS (1)
  1. VENLAFAXINE [Suspect]
     Indication: PRODUCT USED FOR UNKNOWN INDICATION
     Dosage: ORAL
     Dates: start: 20111112

REACTIONS (4)
  - TINNITUS [None]
  - FLUSHING [None]
  - ABDOMINAL PAIN [None]
  - INSOMNIA [None]
